FAERS Safety Report 9111452 (Version 1)
Quarter: 2013Q1

REPORT INFORMATION
  Report Type: Spontaneous
  Country: US (occurrence: US)
  Receive Date: 20130219
  Receipt Date: 20130219
  Transmission Date: 20140127
  Serious: No
  Sender: FDA-Public Use
  Company Number: US-BRISTOL-MYERS SQUIBB COMPANY-17061763

PATIENT
  Age: 58 Year
  Sex: Female

DRUGS (6)
  1. RED YEAST RICE [Concomitant]
  2. MELOXICAM [Concomitant]
  3. ORENCIA [Suspect]
     Indication: RHEUMATOID ARTHRITIS
     Dosage: LAST INF: ABOUT A YEAR. NO OF INF:3-4
     Route: 042
     Dates: start: 20110912, end: 20111114
  4. FOLIC ACID [Concomitant]
  5. METHOTREXATE [Concomitant]
  6. PRILOSEC [Concomitant]

REACTIONS (2)
  - Contusion [Recovered/Resolved]
  - Local swelling [Recovered/Resolved]
